FAERS Safety Report 21941308 (Version 1)
Quarter: 2023Q1

REPORT INFORMATION
  Report Type: Spontaneous
  Country: CA (occurrence: CA)
  Receive Date: 20230202
  Receipt Date: 20230202
  Transmission Date: 20230418
  Serious: No
  Sender: FDA-Public Use
  Company Number: CA-EXELIXIS-CABO-22054138

PATIENT

DRUGS (1)
  1. CABOMETYX [Suspect]
     Active Substance: CABOZANTINIB S-MALATE
     Indication: Leiomyosarcoma
     Dosage: UNK

REACTIONS (3)
  - Trismus [Unknown]
  - Mucosal inflammation [Unknown]
  - Off label use [Unknown]
